FAERS Safety Report 25750634 (Version 1)
Quarter: 2025Q3

REPORT INFORMATION
  Report Type: Spontaneous
  Country: CN (occurrence: CN)
  Receive Date: 20250902
  Receipt Date: 20250902
  Transmission Date: 20251021
  Serious: Yes (Hospitalization)
  Sender: COSETTE PHARMACEUTICALS INC
  Company Number: CN-SA-2025SA251354

PATIENT
  Age: 33 Year
  Sex: Female
  Weight: 50 kg

DRUGS (1)
  1. AMBIEN [Suspect]
     Active Substance: ZOLPIDEM TARTRATE
     Indication: Intentional self-injury
     Route: 048
     Dates: start: 20250808, end: 20250808

REACTIONS (6)
  - Illness [Unknown]
  - Toxicity to various agents [Recovering/Resolving]
  - Nausea [Not Recovered/Not Resolved]
  - Contraindicated product administered [Unknown]
  - Intentional overdose [Unknown]
  - Product use in unapproved indication [Unknown]

NARRATIVE: CASE EVENT DATE: 20250808
